FAERS Safety Report 15655958 (Version 1)
Quarter: 2018Q4

REPORT INFORMATION
  Report Type: Report from Study
  Country: US (occurrence: US)
  Receive Date: 20181126
  Receipt Date: 20181126
  Transmission Date: 20190205
  Serious: Yes (Other)
  Sender: FDA-Public Use
  Company Number: US-SA-2017SA076411

PATIENT
  Age: 39 Year
  Sex: Female

DRUGS (1)
  1. INSULIN GLARGINE [Suspect]
     Active Substance: INSULIN GLARGINE
     Indication: TYPE 1 DIABETES MELLITUS
     Dosage: 16 DF, UNK
     Route: 065
     Dates: start: 20170118

REACTIONS (6)
  - Nephrolithiasis [Recovered/Resolved]
  - Cardiac disorder [Unknown]
  - Stress [Unknown]
  - Retinopathy [Unknown]
  - Skin disorder [Unknown]
  - Blood glucose increased [Unknown]

NARRATIVE: CASE EVENT DATE: 20170118
